FAERS Safety Report 10560056 (Version 2)
Quarter: 2014Q4

REPORT INFORMATION
  Report Type: Spontaneous
  Country: US (occurrence: US)
  Receive Date: 20141103
  Receipt Date: 20141104
  Transmission Date: 20150529
  Serious: Yes (Other)
  Sender: FDA-Public Use
  Company Number: US-BAYER-2014-155623

PATIENT
  Age: 20 Year
  Sex: Female

DRUGS (1)
  1. BAYER HEADACHE RELIEF [Suspect]
     Active Substance: ASPIRIN\CAFFEINE
     Dosage: APPROXIMATELY 30 CAPLETS, ONCE
     Route: 048

REACTIONS (2)
  - Intentional overdose [None]
  - Intentional self-injury [None]

NARRATIVE: CASE EVENT DATE: 20141019
